FAERS Safety Report 17634155 (Version 2)
Quarter: 2020Q2

REPORT INFORMATION
  Report Type: Spontaneous
  Country: US (occurrence: US)
  Receive Date: 20200406
  Receipt Date: 20200410
  Transmission Date: 20200713
  Serious: Yes (Other)
  Sender: FDA-Public Use
  Company Number: US-PFIZER INC-2020137942

PATIENT
  Age: 81 Year
  Sex: Female

DRUGS (2)
  1. LATANOPROST. [Suspect]
     Active Substance: LATANOPROST
     Indication: OCULAR HYPERTENSION
     Dosage: UNK
     Route: 047
  2. AMLODIPINE BESILATE [Suspect]
     Active Substance: AMLODIPINE BESYLATE
     Indication: BLOOD PRESSURE ABNORMAL
     Dosage: 5 MG, UNK

REACTIONS (2)
  - Renal cyst [Unknown]
  - Epistaxis [Unknown]
